FAERS Safety Report 10278703 (Version 1)
Quarter: 2014Q3

REPORT INFORMATION
  Report Type: Other
  Country: TR (occurrence: TR)
  Receive Date: 20140704
  Receipt Date: 20140704
  Transmission Date: 20150326
  Serious: Yes (Life-Threatening, Hospitalization)
  Sender: FDA-Public Use
  Company Number: TR-BRISTOL-MYERS SQUIBB COMPANY-21159595

PATIENT
  Age: 49 Year
  Sex: Male

DRUGS (3)
  1. WARFARIN SODIUM. [Suspect]
     Active Substance: WARFARIN SODIUM
     Dosage: TABS
  2. VERAPAMIL [Concomitant]
     Active Substance: VERAPAMIL HYDROCHLORIDE
     Dosage: TABS
  3. ALBUTEROL. [Concomitant]
     Active Substance: ALBUTEROL

REACTIONS (8)
  - Haemoptysis [Unknown]
  - Activated partial thromboplastin time [Unknown]
  - Dyspnoea [Unknown]
  - International normalised ratio increased [Unknown]
  - Tachypnoea [Unknown]
  - Respiratory failure [Unknown]
  - Pulmonary alveolar haemorrhage [Unknown]
  - Prothrombin time prolonged [Unknown]
